FAERS Safety Report 7941856-5 (Version None)
Quarter: 2011Q4

REPORT INFORMATION
  Report Type: 
  Country: None (occurrence: None)
  Receive Date: 20111128
  Receipt Date: 20111118
  Transmission Date: 20120403
  Serious: Yes (Other)
  Sender: FDA-Public Use
  Company Number: US-BAYER-2011-113098

PATIENT
  Age: 9 Year
  Sex: Male

DRUGS (3)
  1. ANTIHEMOPHILIC FACTOR (HUMAN) [Suspect]
     Dosage: 8 IU/KG, Q1HR, DURING HOSPITAL ADMISSION
     Route: 042
  2. ANTIHEMOPHILIC FACTOR (HUMAN) [Suspect]
     Dosage: 1000 IU, OW, ON FRIDAYS
     Route: 042
  3. ANTIHEMOPHILIC FACTOR (HUMAN) [Suspect]
     Indication: FACTOR VIII DEFICIENCY
     Dosage: 500 IU, BIW, ON MONDAYS AND WEDNESDAY
     Route: 042

REACTIONS (18)
  - ALANINE AMINOTRANSFERASE INCREASED [None]
  - WEGENER'S GRANULOMATOSIS [None]
  - ANTI FACTOR VIII ANTIBODY POSITIVE [None]
  - STREPTOCOCCUS TEST POSITIVE [None]
  - COMPLEMENT FACTOR C3 DECREASED [None]
  - TACHYPNOEA [None]
  - GLOMERULONEPHRITIS RAPIDLY PROGRESSIVE [None]
  - LUNG INFILTRATION [None]
  - ABDOMINAL DISTENSION [None]
  - ASPARTATE AMINOTRANSFERASE INCREASED [None]
  - ATYPICAL MYCOBACTERIUM TEST POSITIVE [None]
  - COMPLEMENT FACTOR C4 DECREASED [None]
  - RENAL FAILURE ACUTE [None]
  - HEPATOSPLENOMEGALY [None]
  - KIDNEY ENLARGEMENT [None]
  - CHEST X-RAY ABNORMAL [None]
  - WHEEZING [None]
  - HAEMOPTYSIS [None]
